FAERS Safety Report 5351056-3 (Version None)
Quarter: 2007Q2

REPORT INFORMATION
  Report Type: 
  Country: None (occurrence: None)
  Receive Date: 20070608
  Receipt Date: 20070607
  Transmission Date: 20071010
  Serious: Yes (Hospitalization)
  Sender: FDA-Public Use
  Company Number: US-BRISTOL-MYERS SQUIBB COMPANY-13761481

PATIENT
  Age: 67 Year
  Sex: Male
  Weight: 133 kg

DRUGS (5)
  1. IRBESARTAN [Suspect]
     Indication: HYPERTENSION
     Dates: start: 20040209
  2. BLINDED: PLACEBO [Suspect]
     Indication: HYPERTENSION
     Dates: start: 20040209
  3. WARFARIN SODIUM [Suspect]
     Indication: PROPHYLAXIS
     Dates: start: 20040209
  4. PLAVIX [Suspect]
     Dates: start: 20070303, end: 20070304
  5. ENOXAPARIN SODIUM [Concomitant]

REACTIONS (2)
  - POST PROCEDURAL HAEMATOMA [None]
  - PYELONEPHRITIS [None]
